FAERS Safety Report 6189182-1 (Version None)
Quarter: 2009Q2

REPORT INFORMATION
  Report Type: 
  Country: None (occurrence: None)
  Receive Date: 20090512
  Receipt Date: 20090427
  Transmission Date: 20091009
  Serious: Yes (Death)
  Sender: FDA-Public Use
  Company Number: 2009001262

PATIENT
  Age: 79 Year
  Sex: Male

DRUGS (1)
  1. ERLOTINIB              (ERLOTINIB) (TABLET)0 [Suspect]
     Indication: NON-SMALL CELL LUNG CANCER
     Dosage: (QD), ORAL
     Route: 048
     Dates: start: 20080825

REACTIONS (1)
  - DEATH [None]
